FAERS Safety Report 24722861 (Version 1)
Quarter: 2024Q4

REPORT INFORMATION
  Report Type: Spontaneous
  Country: DE (occurrence: DE)
  Receive Date: 20241211
  Receipt Date: 20241211
  Transmission Date: 20250115
  Serious: Yes (Life-Threatening, Hospitalization, Other)
  Sender: MERCK
  Company Number: DE-009507513-2412DEU002959

PATIENT
  Age: 48 Year
  Sex: Female

DRUGS (1)
  1. PEMBROLIZUMAB [Suspect]
     Active Substance: PEMBROLIZUMAB
     Indication: Triple negative breast cancer
     Dosage: 200MG, EVERY 3 WEEKS

REACTIONS (4)
  - Hypokalaemia [Recovered/Resolved]
  - Nephritis [Recovered/Resolved]
  - Hypothyroidism [Recovered/Resolved]
  - Hypoproteinaemia [Recovered/Resolved]
